FAERS Safety Report 16002220 (Version 1)
Quarter: 2019Q1

REPORT INFORMATION
  Report Type: Spontaneous
  Country: US (occurrence: US)
  Receive Date: 20190225
  Receipt Date: 20190225
  Transmission Date: 20190418
  Serious: No
  Sender: FDA-Public Use
  Company Number: US-IGSA-SR10006430

PATIENT
  Age: 60 Year
  Sex: Male
  Weight: 78 kg

DRUGS (10)
  1. PROLASTIN-C [Suspect]
     Active Substance: .ALPHA.1-PROTEINASE INHIBITOR HUMAN
     Indication: ALPHA-1 ANTI-TRYPSIN DEFICIENCY
     Dosage: 4680 MG, Q.WK.
     Route: 042
     Dates: start: 20180525
  2. UTIBRON NEOHALER [Concomitant]
     Active Substance: GLYCOPYRROLATE\INDACATEROL MALEATE
  3. ALBUTEROL SULFATE. [Concomitant]
     Active Substance: ALBUTEROL SULFATE
  4. XANAX [Concomitant]
     Active Substance: ALPRAZOLAM
  5. PROAIR HFA [Concomitant]
     Active Substance: ALBUTEROL SULFATE
  6. AMBIEN [Concomitant]
     Active Substance: ZOLPIDEM TARTRATE
  7. DALIRESP [Concomitant]
     Active Substance: ROFLUMILAST
  8. LISINOPRIL AND HYDROCHLOROTHIAZIDE [Concomitant]
     Active Substance: HYDROCHLOROTHIAZIDE\LISINOPRIL
  9. SEROQUEL [Concomitant]
     Active Substance: QUETIAPINE FUMARATE
  10. PREDNISONE. [Concomitant]
     Active Substance: PREDNISONE

REACTIONS (7)
  - Arthralgia [Recovering/Resolving]
  - Urticaria [Recovering/Resolving]
  - Nausea [Recovering/Resolving]
  - Oropharyngeal pain [Unknown]
  - Back pain [Recovering/Resolving]
  - Tongue discomfort [Not Recovered/Not Resolved]
  - Vomiting [Recovering/Resolving]

NARRATIVE: CASE EVENT DATE: 20180525
